FAERS Safety Report 8336780-2 (Version None)
Quarter: 2012Q2

REPORT INFORMATION
  Report Type: 
  Country: None (occurrence: None)
  Receive Date: 20120501
  Receipt Date: 20120419
  Transmission Date: 20120825
  Serious: Yes (Hospitalization)
  Sender: FDA-Public Use
  Company Number: USA/USA/12/0024043

PATIENT
  Age: 17 Year
  Sex: Female

DRUGS (3)
  1. IBUPROFEN [Suspect]
     Indication: MIGRAINE
     Dosage: INTERMITTANTLY
  2. ACETAMINOPHGEN/DICHLORALPEHNAZONE/ISOMETHEPTENE (ISOCOM) [Suspect]
     Indication: MIGRAINE
     Dosage: INTERMITTANTLY
  3. IVLG INFUSIONS (IMMUNOGLOBULIN HUMAN NORMAL) [Concomitant]

REACTIONS (5)
  - ERYTHEMA [None]
  - EPIDERMAL NECROSIS [None]
  - DERMATITIS [None]
  - DRUG ERUPTION [None]
  - ERYTHEMA MULTIFORME [None]
